FAERS Safety Report 10871878 (Version 1)
Quarter: 2015Q1

REPORT INFORMATION
  Report Type: Spontaneous
  Country: PE (occurrence: None)
  Receive Date: 20150223
  Receipt Date: 20150223
  Transmission Date: 20150721
  Serious: Yes (Hospitalization)
  Sender: FDA-Public Use
  Company Number: None

PATIENT
  Age: 12 Year
  Sex: Female
  Weight: 49 kg

DRUGS (6)
  1. DEXAMETHASONE. [Concomitant]
     Active Substance: DEXAMETHASONE
  2. CEFTRIAXONA [Concomitant]
     Active Substance: CEFTRIAXONE
  3. BAGOMICINA (MINOCICLINA) 100 MG BAGO [Suspect]
     Active Substance: MINOCYCLINE HYDROCHLORIDE
     Indication: ACNE
     Dosage: 1 PILL ONCE DAILY TAKEN BY MOUTH
     Route: 048
     Dates: start: 20150113, end: 20150208
  4. IBUPROFENO [Concomitant]
     Active Substance: IBUPROFEN
  5. METAMIZOL [Concomitant]
     Active Substance: METAMIZOLE SODIUM
  6. CHLORPHENIRAMINE [Concomitant]
     Active Substance: CHLORPHENIRAMINE

REACTIONS (6)
  - Headache [None]
  - Rash generalised [None]
  - Rash [None]
  - Abdominal pain upper [None]
  - Pyrexia [None]
  - Inflammation [None]

NARRATIVE: CASE EVENT DATE: 20150208
